FAERS Safety Report 8463686-0 (Version None)
Quarter: 2012Q2

REPORT INFORMATION
  Report Type: 
  Country: None (occurrence: None)
  Receive Date: 20120625
  Receipt Date: 20120611
  Transmission Date: 20120825
  Serious: No
  Sender: FDA-Public Use
  Company Number: US-ASTRAZENECA-2012SE35262

PATIENT
  Age: 49 Year
  Sex: Female
  Weight: 56.7 kg

DRUGS (7)
  1. NEXIUM [Suspect]
     Route: 048
     Dates: start: 20120201, end: 20120608
  2. SEROQUEL [Suspect]
     Indication: SLEEP DISORDER
     Route: 048
     Dates: start: 20111201
  3. NEXIUM [Suspect]
     Indication: OESOPHAGITIS
     Route: 048
     Dates: start: 20111101
  4. NEXIUM [Suspect]
     Indication: GASTROOESOPHAGEAL REFLUX DISEASE
     Route: 048
     Dates: start: 20111101
  5. NEXIUM [Suspect]
     Route: 048
     Dates: start: 20120201, end: 20120608
  6. SEROQUEL [Suspect]
     Indication: BIPOLAR DISORDER
     Route: 048
     Dates: start: 20111201
  7. CYMBALTA [Suspect]
     Route: 065

REACTIONS (9)
  - LOWER RESPIRATORY TRACT INFECTION [None]
  - INTENTIONAL DRUG MISUSE [None]
  - NASOPHARYNGITIS [None]
  - OFF LABEL USE [None]
  - BRADYPHRENIA [None]
  - MALAISE [None]
  - DRUG DOSE OMISSION [None]
  - VOMITING [None]
  - SOMNOLENCE [None]
